FAERS Safety Report 9266901 (Version 1)
Quarter: 2013Q2

REPORT INFORMATION
  Report Type: Spontaneous
  Country: BR (occurrence: BR)
  Receive Date: 20130502
  Receipt Date: 20130502
  Transmission Date: 20140414
  Serious: Yes (Other)
  Sender: FDA-Public Use
  Company Number: BR-JNJFOC-20130416290

PATIENT
  Age: 22 Year
  Sex: Male
  Weight: 64 kg

DRUGS (2)
  1. ULTRACET [Suspect]
     Indication: PAIN IN EXTREMITY
     Route: 048
     Dates: start: 20130424
  2. ETORICOXIB [Concomitant]
     Indication: PAIN IN EXTREMITY
     Route: 065
     Dates: start: 20130424

REACTIONS (3)
  - Haematemesis [Not Recovered/Not Resolved]
  - Vomiting [Not Recovered/Not Resolved]
  - Hot flush [Recovering/Resolving]
